FAERS Safety Report 8406118-0 (Version None)
Quarter: 2012Q2

REPORT INFORMATION
  Report Type: 
  Country: None (occurrence: None)
  Receive Date: 20120323
  Receipt Date: 20110210
  Transmission Date: 20120825
  Serious: Yes (Death)
  Sender: FDA-Public Use
  Company Number: 163-21880-11010873

PATIENT
  Sex: Male

DRUGS (15)
  1. VITAMIN D (ERGOCALCIFEROL) (UNKNOWN) [Concomitant]
  2. FISH OIL (FISH OIL) (UNKNOWN) [Concomitant]
  3. CALCIUM (CALCIUM) (UNKNOWN) [Concomitant]
  4. OMEPRAZOLE [Concomitant]
  5. VALTREX (VALACICLOVIR HYDROCHLORIDE) (UNKNOWN [Concomitant]
  6. DARVOCET-N (PROPACET) (UNKNOWN) [Concomitant]
  7. FOLATE (FOLIC ACID) (UNKNOWN) [Concomitant]
  8. COUMADIN [Concomitant]
  9. LOPRESSOR [Concomitant]
  10. XANAX [Concomitant]
  11. CATAPRES (CLONIDINE) (UNKNOWN) [Concomitant]
  12. REVLIMID [Suspect]
     Indication: MULTIPLE MYELOMA
     Dosage: 5 MG, 1 IN 1 D, PO 5 MG, 1 IN 1 D, PO 5 MG, 1 IN 1 D, PO
     Route: 048
     Dates: start: 20100601
  13. REVLIMID [Suspect]
     Indication: MULTIPLE MYELOMA
     Dosage: 5 MG, 1 IN 1 D, PO 5 MG, 1 IN 1 D, PO 5 MG, 1 IN 1 D, PO
     Route: 048
     Dates: start: 20100901
  14. REVLIMID [Suspect]
     Indication: MULTIPLE MYELOMA
     Dosage: 5 MG, 1 IN 1 D, PO 5 MG, 1 IN 1 D, PO 5 MG, 1 IN 1 D, PO
     Route: 048
     Dates: start: 20101201
  15. FOSRENOL (LANTHANUM CARBONATE) (UNKNOWN) [Concomitant]

REACTIONS (3)
  - CEREBROVASCULAR ACCIDENT [None]
  - CORONARY ARTERY BYPASS [None]
  - CARDIAC FAILURE CONGESTIVE [None]
